FAERS Safety Report 6786738-X (Version None)
Quarter: 2010Q2

REPORT INFORMATION
  Report Type: 
  Country: None (occurrence: None)
  Receive Date: 20100623
  Receipt Date: 20100611
  Transmission Date: 20101027
  Serious: Yes (Hospitalization, Other)
  Sender: FDA-Public Use
  Company Number: US-ELI_LILLY_AND_COMPANY-US201006004937

PATIENT
  Sex: Female

DRUGS (19)
  1. FORTEO [Suspect]
     Indication: OSTEOPOROSIS
     Dosage: 20 UG, DAILY (1/D)
     Dates: start: 20090801
  2. ZETIA [Concomitant]
     Dosage: 10 MG, DAILY (1/D)
  3. WELCHOL [Concomitant]
     Dosage: 625 MG, SIX A DAY
  4. CYCLOBENZAPRINE [Concomitant]
     Dosage: 10 MG, DAILY (1/D)
  5. GABAPENTIN [Concomitant]
     Dosage: 400 MG, 2/D
  6. DARVOCET [Concomitant]
     Dosage: 1 D/F, AS NEEDED
  7. CARVEDILOL [Concomitant]
     Dosage: 12.5 MG, 2/D
  8. TORSEMIDE [Concomitant]
     Dosage: 10 MG, DAILY (1/D)
  9. LEVOTHYROXINE SODIUM [Concomitant]
     Dosage: 137 UG, DAILY (1/D)
  10. PLAVIX [Concomitant]
     Dosage: 75 MG, DAILY (1/D)
  11. ASPIRIN [Concomitant]
     Dosage: 81 MG, DAILY (1/D)
  12. VITAMIN B12 NOS [Concomitant]
     Dosage: 500 MG, DAILY (1/D)
  13. TRAVATAN [Concomitant]
     Dosage: 1 GTT, EACH EVENING
     Route: 047
  14. MOMETASONE FUROATE [Concomitant]
     Dosage: 1 D/F, AS NEEDED
     Route: 061
  15. VITAMIN D [Concomitant]
     Dosage: 50000 IU, MONTHLY (1/M)
  16. OSCAL D [Concomitant]
     Dosage: 500 MG, UNKNOWN
  17. CO-Q10 [Concomitant]
     Dosage: 200 MG, DAILY (1/D)
  18. PRAVASTATIN [Concomitant]
     Dosage: 40 MG, DAILY (1/D)
  19. LOVAZA [Concomitant]
     Dosage: 4 TABLETS, DAILY (1/D)

REACTIONS (2)
  - CAROTID ARTERY STENOSIS [None]
  - CORNEAL ABRASION [None]
